FAERS Safety Report 10154285 (Version 2)
Quarter: 2014Q2

REPORT INFORMATION
  Report Type: Spontaneous
  Country: AU (occurrence: AU)
  Receive Date: 20140506
  Receipt Date: 20140613
  Transmission Date: 20141212
  Serious: No
  Sender: FDA-Public Use
  Company Number: AU-JNJFOC-20140500729

PATIENT
  Sex: Female

DRUGS (1)
  1. DUROGESIC [Suspect]
     Indication: PRODUCT USED FOR UNKNOWN INDICATION
     Route: 062

REACTIONS (7)
  - Drug effect decreased [Not Recovered/Not Resolved]
  - Product physical issue [Unknown]
  - Product quality issue [Unknown]
  - Pain [Not Recovered/Not Resolved]
  - Wrong technique in drug usage process [Unknown]
  - Product adhesion issue [Unknown]
  - Drug dose omission [Unknown]
